FAERS Safety Report 5131425-7 (Version None)
Quarter: 2006Q4

REPORT INFORMATION
  Report Type: 
  Country: None (occurrence: None)
  Receive Date: 20061020
  Receipt Date: 20061012
  Transmission Date: 20070319
  Serious: Yes (Hospitalization)
  Sender: FDA-Public Use
  Company Number: DE-GLAXOSMITHKLINE-B0442415A

PATIENT
  Age: 76 Year
  Sex: Female

DRUGS (4)
  1. LITHIUM CARBONATE [Suspect]
     Route: 065
  2. ACE INHIBITOR [Suspect]
     Route: 065
  3. THIAZIDE DIURETIC [Suspect]
     Route: 065
  4. BETA BLOCKER [Concomitant]
     Route: 065

REACTIONS (13)
  - ABASIA [None]
  - APHASIA [None]
  - ATRIAL FIBRILLATION [None]
  - BLOOD CREATININE INCREASED [None]
  - CHOREOATHETOSIS [None]
  - COMMUNICATION DISORDER [None]
  - CONFUSIONAL STATE [None]
  - COORDINATION ABNORMAL [None]
  - DRUG INTERACTION [None]
  - DYSARTHRIA [None]
  - DYSKINESIA [None]
  - TACHYARRHYTHMIA [None]
  - THERAPEUTIC AGENT TOXICITY [None]
